FAERS Safety Report 6633643-5 (Version None)
Quarter: 2010Q1

REPORT INFORMATION
  Report Type: 
  Country: None (occurrence: None)
  Receive Date: 20100312
  Receipt Date: 20100304
  Transmission Date: 20100710
  Serious: Yes (Other)
  Sender: FDA-Public Use
  Company Number: US-AMGEN-QUU392907

PATIENT
  Sex: Female
  Weight: 53 kg

DRUGS (1)
  1. NPLATE [Suspect]
     Indication: IDIOPATHIC THROMBOCYTOPENIC PURPURA
     Route: 058
     Dates: start: 20090306, end: 20090623

REACTIONS (4)
  - FATIGUE [None]
  - SKIN LESION [None]
  - SWELLING [None]
  - THERAPEUTIC RESPONSE DECREASED [None]
